FAERS Safety Report 5217807-3 (Version None)
Quarter: 2007Q1

REPORT INFORMATION
  Report Type: 
  Country: None (occurrence: None)
  Receive Date: 20070124
  Receipt Date: 20070119
  Transmission Date: 20070707
  Serious: Yes (Death)
  Sender: FDA-Public Use
  Company Number: US-BAXTER-2007BH000519

PATIENT

DRUGS (1)
  1. DOPAMINE HYDROCHLORIDE [Suspect]
     Indication: HYPOTENSION
     Route: 041

REACTIONS (4)
  - CARDIAC ARREST [None]
  - DEATH [None]
  - HYPOTENSION [None]
  - MEDICATION ERROR [None]
